FAERS Safety Report 19451468 (Version 1)
Quarter: 2021Q2

REPORT INFORMATION
  Report Type: Spontaneous
  Country: US (occurrence: US)
  Receive Date: 20210623
  Receipt Date: 20210623
  Transmission Date: 20210717
  Serious: No
  Sender: FDA-Public Use
  Company Number: ALC2020US008909

PATIENT
  Sex: Female

DRUGS (1)
  1. PATADAY [Suspect]
     Active Substance: OLOPATADINE HYDROCHLORIDE
     Indication: PRODUCT USED FOR UNKNOWN INDICATION
     Dosage: UNK
     Route: 065

REACTIONS (5)
  - Eyelid margin crusting [Recovered/Resolved]
  - Vision blurred [Recovered/Resolved]
  - Ocular discomfort [Recovered/Resolved]
  - Product residue present [Recovered/Resolved]
  - Product administration error [Recovered/Resolved]
